FAERS Safety Report 12487652 (Version 1)
Quarter: 2016Q2

REPORT INFORMATION
  Report Type: Spontaneous
  Country: US (occurrence: None)
  Receive Date: 20160621
  Receipt Date: 20160621
  Transmission Date: 20160815
  Serious: Yes (Hospitalization)
  Sender: FDA-Public Use
  Company Number: None

PATIENT
  Age: 68 Year
  Sex: Male
  Weight: 102.7 kg

DRUGS (1)
  1. OBINUTUZUMAB [Suspect]
     Active Substance: OBINUTUZUMAB
     Route: 042
     Dates: start: 20151202, end: 20151202

REACTIONS (6)
  - Atrial flutter [None]
  - Blood pressure systolic increased [None]
  - Infusion related reaction [None]
  - Weight increased [None]
  - Chest discomfort [None]
  - Atrial fibrillation [None]

NARRATIVE: CASE EVENT DATE: 20151203
